FAERS Safety Report 24892254 (Version 1)
Quarter: 2025Q1

REPORT INFORMATION
  Report Type: Spontaneous
  Country: FR (occurrence: FR)
  Receive Date: 20250128
  Receipt Date: 20250128
  Transmission Date: 20250409
  Serious: Yes (Hospitalization, Other)
  Sender: AUROBINDO
  Company Number: FR-AFSSAPS-PP2025000012

PATIENT
  Age: 57 Year
  Sex: Male
  Weight: 99.5 kg

DRUGS (2)
  1. ATORVASTATIN [Suspect]
     Active Substance: ATORVASTATIN
     Indication: Hypercholesterolaemia
     Dosage: 80 MILLIGRAM, ONCE A DAY (80 MG/D) (1FP)
     Route: 048
     Dates: end: 20241022
  2. METFORMIN [Suspect]
     Active Substance: METFORMIN HYDROCHLORIDE
     Indication: Type 2 diabetes mellitus
     Dosage: 3000 MILLIGRAM, ONCE A DAY (1000 MG 3 TIMES A DAY)
     Route: 048
     Dates: end: 20241022

REACTIONS (2)
  - Rhabdomyolysis [Recovering/Resolving]
  - Myositis [Recovering/Resolving]

NARRATIVE: CASE EVENT DATE: 20241021
